FAERS Safety Report 7148227-2 (Version None)
Quarter: 2010Q4

REPORT INFORMATION
  Report Type: 
  Country: None (occurrence: None)
  Receive Date: 20101209
  Receipt Date: 20101129
  Transmission Date: 20110411
  Serious: Yes (Hospitalization)
  Sender: FDA-Public Use
  Company Number: PHHY2009FR50906

PATIENT
  Sex: Male
  Weight: 102 kg

DRUGS (12)
  1. RASILEZ [Suspect]
     Indication: HYPERTENSION
     Dosage: 300 MG, UNK
     Dates: start: 20090825, end: 20091006
  2. CONVERTING ENZYME INHIBITOR [Concomitant]
  3. CALCIC INHIBITOR [Concomitant]
  4. CINACALCET [Concomitant]
     Indication: HYPERPARATHYROIDISM
  5. ZYLORIC [Concomitant]
  6. DEPAKOTE [Concomitant]
     Dosage: 500 MG, UNK
  7. IMOVANE [Concomitant]
  8. KALEORID [Concomitant]
     Dosage: 500 MG, UNK
  9. LERCANIDIPINE [Concomitant]
     Dosage: 10 MG, UNK
  10. LOXAPAC [Concomitant]
     Dosage: 50 MG, UNK
  11. PRETERAX [Concomitant]
     Dosage: 0.625/20 MG
  12. MICARDIS HCT [Concomitant]

REACTIONS (1)
  - ANGIOEDEMA [None]
